FAERS Safety Report 6646206-2 (Version None)
Quarter: 2010Q1

REPORT INFORMATION
  Report Type: 
  Country: None (occurrence: None)
  Receive Date: 20100318
  Receipt Date: 20100309
  Transmission Date: 20100710
  Serious: Yes (Other)
  Sender: FDA-Public Use
  Company Number: 2010US000795

PATIENT
  Age: 29 Year
  Sex: Male

DRUGS (3)
  1. VIBATIV [Suspect]
     Indication: CELLULITIS STAPHYLOCOCCAL
     Dosage: 750 MG,/D, IV NOS
     Route: 042
     Dates: start: 20100305, end: 20100310
  2. DAPTOMYCIN [Suspect]
     Indication: CELLULITIS STAPHYLOCOCCAL
     Dates: start: 20100301, end: 20100305
  3. GENTAMICIN [Concomitant]

REACTIONS (7)
  - ALANINE AMINOTRANSFERASE INCREASED [None]
  - ASPARTATE AMINOTRANSFERASE INCREASED [None]
  - BACTERAEMIA [None]
  - BLOOD ALKALINE PHOSPHATASE INCREASED [None]
  - LIVER FUNCTION TEST ABNORMAL [None]
  - LUNG DISORDER [None]
  - SPUTUM CULTURE POSITIVE [None]
